FAERS Safety Report 7640696-4 (Version None)
Quarter: 2011Q3

REPORT INFORMATION
  Report Type: 
  Country: None (occurrence: None)
  Receive Date: 20110728
  Receipt Date: 20110725
  Transmission Date: 20111222
  Serious: Yes (Other)
  Sender: FDA-Public Use
  Company Number: US-BAYER-2011-065209

PATIENT
  Age: 32 Year
  Sex: Female

DRUGS (2)
  1. YAZ [Suspect]
     Dosage: UNK
     Dates: start: 20080630, end: 20090901
  2. YASMIN [Suspect]
     Dosage: UNK
     Dates: start: 20061031, end: 20080630

REACTIONS (2)
  - INJURY [None]
  - CHOLECYSTECTOMY [None]
